FAERS Safety Report 15672757 (Version 1)
Quarter: 2018Q4

REPORT INFORMATION
  Report Type: Spontaneous
  Country: US (occurrence: US)
  Receive Date: 20181129
  Receipt Date: 20181129
  Transmission Date: 20190205
  Serious: No
  Sender: FDA-Public Use
  Company Number: US-ROCHE-2189090

PATIENT
  Sex: Female

DRUGS (1)
  1. OCREVUS [Suspect]
     Active Substance: OCRELIZUMAB
     Indication: TUMEFACTIVE MULTIPLE SCLEROSIS
     Route: 065

REACTIONS (2)
  - Feeling abnormal [Unknown]
  - Fall [Unknown]
